FAERS Safety Report 21891595 (Version 1)
Quarter: 2023Q1

REPORT INFORMATION
  Report Type: Spontaneous
  Country: FR (occurrence: FR)
  Receive Date: 20230120
  Receipt Date: 20230120
  Transmission Date: 20230418
  Serious: Yes (Other)
  Sender: FDA-Public Use
  Company Number: FR-002147023-NVSC2023FR010489

PATIENT
  Age: 61 Year
  Sex: Male

DRUGS (3)
  1. OCTREOTIDE ACETATE [Suspect]
     Active Substance: OCTREOTIDE ACETATE
     Indication: Malaise
     Dosage: 30 MG, Q3W (ONE INJECTION OF 30MG) (SOLUTION FOR INJECTION)
     Route: 065
     Dates: start: 202207
  2. OCTREOTIDE ACETATE [Suspect]
     Active Substance: OCTREOTIDE ACETATE
  3. OCTREOTIDE ACETATE [Suspect]
     Active Substance: OCTREOTIDE ACETATE

REACTIONS (4)
  - Cardiac neoplasm malignant [Unknown]
  - Recurrent cancer [Unknown]
  - Off label use [Unknown]
  - Product use in unapproved indication [Unknown]
